FAERS Safety Report 10036247 (Version 2)
Quarter: 2014Q1

REPORT INFORMATION
  Report Type: Spontaneous
  Country: PR (occurrence: PR)
  Receive Date: 20140325
  Receipt Date: 20140325
  Transmission Date: 20141002
  Serious: No
  Sender: FDA-Public Use
  Company Number: PR-BAXTER-2014BAX010997

PATIENT
  Sex: 0

DRUGS (14)
  1. CLINISOL 15% SULFITE-FREE [Suspect]
     Indication: NUTRITIONAL SUPPLEMENTATION
     Route: 065
     Dates: start: 20140223, end: 20140223
  2. CLINISOL 15% SULFITE-FREE [Suspect]
     Route: 065
     Dates: start: 20140227, end: 20140227
  3. 70% DEXTROSE INJECTION USP [Suspect]
     Indication: NUTRITIONAL SUPPLEMENTATION
     Route: 065
     Dates: start: 20140223, end: 20140223
  4. 70% DEXTROSE INJECTION USP [Suspect]
     Route: 065
     Dates: start: 20140227, end: 20140227
  5. STERILE WATER FOR INJECTION USP [Suspect]
     Indication: NUTRITIONAL SUPPLEMENTATION
     Route: 065
     Dates: start: 20140223, end: 20140223
  6. STERILE WATER FOR INJECTION USP [Suspect]
     Route: 065
     Dates: start: 20140227, end: 20140227
  7. POTASSIUM CHLORIDE 0.4MEQ/ML [Suspect]
     Indication: NUTRITIONAL SUPPLEMENTATION
     Route: 065
     Dates: start: 20140223, end: 20140223
  8. POTASSIUM CHLORIDE 0.4MEQ/ML [Suspect]
     Route: 065
     Dates: start: 20140227, end: 20140227
  9. CALCIUM GLUCONATE [Suspect]
     Indication: NUTRITIONAL SUPPLEMENTATION
     Route: 065
     Dates: start: 20140223, end: 20140223
  10. CALCIUM GLUCONATE [Suspect]
     Route: 065
     Dates: start: 20140227, end: 20140227
  11. MG SULFATE [Suspect]
     Indication: NUTRITIONAL SUPPLEMENTATION
     Route: 065
     Dates: start: 20140223, end: 20140223
  12. MG SULFATE [Suspect]
     Route: 065
     Dates: start: 20140227, end: 20140227
  13. NA CHLORIDE [Suspect]
     Indication: NUTRITIONAL SUPPLEMENTATION
     Route: 065
     Dates: start: 20140223, end: 20140223
  14. NA CHLORIDE [Suspect]
     Route: 065
     Dates: start: 20140227, end: 20140227

REACTIONS (2)
  - Incorrect drug administration rate [Recovered/Resolved]
  - No adverse event [Recovered/Resolved]
